FAERS Safety Report 20408674 (Version 2)
Quarter: 2022Q1

REPORT INFORMATION
  Report Type: Spontaneous
  Country: GB (occurrence: GB)
  Receive Date: 20220201
  Receipt Date: 20220217
  Transmission Date: 20220424
  Serious: Yes (Death, Other)
  Sender: FDA-Public Use
  Company Number: GB-AMGEN-GBRSP2022012937

PATIENT

DRUGS (2)
  1. XGEVA [Suspect]
     Active Substance: DENOSUMAB
     Indication: Product used for unknown indication
     Dosage: UNK
     Route: 065
  2. ETOPOSIDE [Concomitant]
     Active Substance: ETOPOSIDE
     Dosage: UNK
     Route: 048

REACTIONS (1)
  - Death [Fatal]
